FAERS Safety Report 6331437-1 (Version None)
Quarter: 2009Q3

REPORT INFORMATION
  Report Type: 
  Country: None (occurrence: None)
  Receive Date: 20090827
  Receipt Date: 20090821
  Transmission Date: 20100115
  Serious: Yes (Hospitalization, Disabling)
  Sender: FDA-Public Use
  Company Number: US-ABBOTT-08P-163-0444120-00

PATIENT
  Sex: Female
  Weight: 68.1 kg

DRUGS (7)
  1. HUMIRA [Suspect]
     Indication: RHEUMATOID ARTHRITIS
     Route: 058
     Dates: start: 20061101
  2. HUMIRA [Suspect]
     Route: 058
     Dates: start: 20070101, end: 20080101
  3. HUMIRA [Suspect]
     Indication: RHEUMATOID ARTHRITIS
     Dates: start: 20080101
  4. METHOTREXATE SODIUM [Concomitant]
     Indication: RHEUMATOID ARTHRITIS
     Route: 048
  5. MULTIPLE MEDICATIONS FOR LYME DISEASE [Concomitant]
     Indication: LYME DISEASE
  6. ALBUTEROL [Concomitant]
     Indication: ASTHMA
     Route: 055
     Dates: start: 20060101
  7. OXYGEN [Concomitant]
     Indication: NOCTURNAL DYSPNOEA
     Route: 055
     Dates: start: 20071001

REACTIONS (10)
  - ABDOMINAL DISTENSION [None]
  - ACCIDENTAL NEEDLE STICK [None]
  - ASTHMA [None]
  - CATARACT [None]
  - DEHYDRATION [None]
  - HIATUS HERNIA [None]
  - INCORRECT DOSE ADMINISTERED [None]
  - NOCTURNAL DYSPNOEA [None]
  - OEDEMA PERIPHERAL [None]
  - VOMITING [None]
